FAERS Safety Report 10687268 (Version 1)
Quarter: 2014Q4

REPORT INFORMATION
  Report Type: Spontaneous
  Country: DE (occurrence: None)
  Receive Date: 20141230
  Receipt Date: 20141230
  Transmission Date: 20150529
  Serious: Yes (Hospitalization)
  Sender: FDA-Public Use
  Company Number: 2685952

PATIENT
  Age: 63 Year
  Sex: Male
  Weight: 80 kg

DRUGS (8)
  1. (DOCETAXEL) [Suspect]
     Active Substance: DOCETAXEL
     Indication: BRONCHIAL CARCINOMA
     Dosage: 75 MG/M 2 MILLIGRAM(S)/SQ. METER (1 WEEK ) INTRAVENOUS (NOT OTHERWISE SPECIFIED)
     Route: 042
  2. (OMEPRAZOLE) [Concomitant]
  3. (PEPPERMINT OIL) [Concomitant]
  4. (CETIRIZINE) [Concomitant]
  5. (SALBUTAMOL) [Concomitant]
  6. (MAGALDRATE) [Concomitant]
  7. (METOPROLOL SUCCINATE) [Concomitant]
  8. (IBUPROFEN) [Concomitant]

REACTIONS (2)
  - Circulatory collapse [None]
  - Pain in extremity [None]

NARRATIVE: CASE EVENT DATE: 20141130
